FAERS Safety Report 11118711 (Version 2)
Quarter: 2015Q2

REPORT INFORMATION
  Report Type: Spontaneous
  Country: EC (occurrence: EC)
  Receive Date: 20150518
  Receipt Date: 20150603
  Transmission Date: 20150821
  Serious: Yes (Death)
  Sender: FDA-Public Use
  Company Number: EC-PFIZER INC-2015166915

PATIENT
  Age: 76 Year
  Sex: Male

DRUGS (1)
  1. LYRICA [Suspect]
     Active Substance: PREGABALIN
     Indication: PAIN
     Dosage: 150 MG, 3X/DAY

REACTIONS (3)
  - Colon cancer [Fatal]
  - Condition aggravated [Fatal]
  - Drug ineffective [Unknown]
